FAERS Safety Report 4744069-3 (Version None)
Quarter: 2005Q3

REPORT INFORMATION
  Report Type: 
  Country: None (occurrence: None)
  Receive Date: 20050809
  Receipt Date: 20050729
  Transmission Date: 20060218
  Serious: Yes (Other)
  Sender: FDA-Public Use
  Company Number: HQWYE665102AUG05

PATIENT
  Age: 58 Year
  Sex: Male

DRUGS (10)
  1. RAPAMUNE [Suspect]
     Indication: PROPHYLAXIS AGAINST TRANSPLANT REJECTION
     Dosage: 3 MG 1X PER 1 DAY, ORAL
     Route: 048
     Dates: start: 20030314
  2. ACTIGALL [Concomitant]
  3. HYDROXYZINE [Concomitant]
  4. HEXAVITAMIN  (ASCORBIC ACID/ERGOCALCIFEROL/NICOTINAMIDE/RETINOL/RIBOFL [Concomitant]
  5. BACTRIM [Concomitant]
  6. ASPIRIN [Concomitant]
  7. AUGMENTIN '125' [Concomitant]
  8. PREDNISONE [Concomitant]
  9. INDRAL (PROPRANOLOL HYDROCHLORIDE) [Concomitant]
  10. HYDROCHLOROTHIAZIDE [Concomitant]

REACTIONS (2)
  - IMMUNOSUPPRESSION [None]
  - MALIGNANT MELANOMA [None]
